FAERS Safety Report 10302339 (Version 3)
Quarter: 2014Q4

REPORT INFORMATION
  Report Type: Report from Study
  Country: JP (occurrence: JP)
  Receive Date: 20140714
  Receipt Date: 20141009
  Transmission Date: 20150528
  Serious: Yes (Other)
  Sender: FDA-Public Use
  Company Number: JP-AMGEN-JPNCT2014052420

PATIENT
  Sex: Female
  Weight: 39 kg

DRUGS (19)
  1. MAGLAX [Concomitant]
     Active Substance: MAGNESIUM OXIDE
     Dosage: 990 G, QD
     Route: 048
     Dates: start: 20131001, end: 20131108
  2. OXINORM                            /00045603/ [Concomitant]
     Dosage: 5 MG, QD
     Route: 048
     Dates: start: 20131011, end: 20131118
  3. HALAVEN [Concomitant]
     Active Substance: ERIBULIN MESYLATE
     Dosage: 2 MG, QID
     Route: 042
     Dates: start: 20130816, end: 20130913
  4. CALCICHEW D3 [Concomitant]
     Active Substance: CALCIUM\CHOLECALCIFEROL
     Dosage: 2 DF, QD
     Route: 048
     Dates: start: 20130802, end: 20140106
  5. PROTECADIN [Concomitant]
     Active Substance: LAFUTIDINE
     Dosage: 2 DF, QD
     Route: 048
     Dates: start: 20130816, end: 20131015
  6. DENOSUMAB [Suspect]
     Active Substance: DENOSUMAB
     Indication: METASTASES TO BONE
     Dosage: 120 MG, UNK
     Route: 058
     Dates: start: 20130802
  7. PERTUZUMAB [Concomitant]
     Active Substance: PERTUZUMAB
     Dosage: 840 MG, BID
     Route: 042
     Dates: start: 20131118, end: 20131209
  8. NAVELBIN [Concomitant]
     Dosage: 34.5 MG, QID
     Route: 042
     Dates: start: 20130927, end: 20131028
  9. URSODEOXYCHOLIC ACID [Concomitant]
     Active Substance: URSODIOL
     Dosage: 300 MG, QD
     Route: 048
     Dates: start: 20130816, end: 20131108
  10. ZOMETA [Concomitant]
     Active Substance: ZOLEDRONIC ACID
     Dosage: 4 MG 22 TIMES, QD
     Route: 042
     Dates: start: 20120116, end: 20130701
  11. HERCEPTIN [Concomitant]
     Active Substance: TRASTUZUMAB
     Dosage: 210 MG, 12 TIMES/DAY
     Route: 042
     Dates: start: 20130816, end: 20131209
  12. NEXIUM [Concomitant]
     Active Substance: ESOMEPRAZOLE MAGNESIUM
     Dosage: 20 MG, QD
     Route: 048
     Dates: start: 20130906, end: 20131108
  13. CIPROXAN                           /00697202/ [Concomitant]
     Active Substance: CIPROFLOXACIN
     Dosage: 400 MG, QD
     Route: 048
     Dates: start: 20131126, end: 20131130
  14. LOXONIN [Concomitant]
     Active Substance: LOXOPROFEN SODIUM
     Dosage: 60 MG, QD
     Route: 048
     Dates: start: 20131126, end: 20131130
  15. APHTHASEAL S [Concomitant]
     Dosage: FEEL A PAIN
     Route: 050
     Dates: start: 20131126
  16. GLYCYRON                           /00466401/ [Concomitant]
     Dosage: 6DF/DAY
  17. TAXOTERE [Concomitant]
     Active Substance: DOCETAXEL
     Dosage: 98 MG, QD
     Route: 042
     Dates: start: 20131118, end: 20131118
  18. GLYCYRON                           /00466401/ [Concomitant]
     Dosage: 6 DF, QD
     Route: 048
     Dates: start: 20130816, end: 20131108
  19. OXYCONTIN [Concomitant]
     Active Substance: OXYCODONE HYDROCHLORIDE
     Dosage: 10 MG, QD
     Route: 048
     Dates: start: 20131001, end: 20131208

REACTIONS (4)
  - Stomatitis [Not Recovered/Not Resolved]
  - Vomiting [Not Recovered/Not Resolved]
  - Neuropathy peripheral [Not Recovered/Not Resolved]
  - Osteonecrosis of jaw [Recovering/Resolving]

NARRATIVE: CASE EVENT DATE: 20130708
